FAERS Safety Report 6666502-2 (Version None)
Quarter: 2010Q2

REPORT INFORMATION
  Report Type: 
  Country: None (occurrence: None)
  Receive Date: 20100402
  Receipt Date: 20100325
  Transmission Date: 20101027
  Serious: Yes (Hospitalization)
  Sender: FDA-Public Use
  Company Number: AU-ALLERGAN-1003715US

PATIENT
  Age: 44 Year
  Sex: Female

DRUGS (1)
  1. BOTOX [Suspect]
     Indication: SKIN WRINKLING
     Dosage: 25 UNITS, SINGLE
     Route: 030
     Dates: start: 20100301, end: 20100301

REACTIONS (16)
  - CIRCULATORY COLLAPSE [None]
  - COUGH [None]
  - DIZZINESS [None]
  - DRY EYE [None]
  - EYELID OEDEMA [None]
  - HEADACHE [None]
  - HYPOAESTHESIA FACIAL [None]
  - LACRIMATION INCREASED [None]
  - MIGRAINE [None]
  - NAUSEA [None]
  - PARAESTHESIA [None]
  - RHINORRHOEA [None]
  - SENSATION OF PRESSURE [None]
  - SWELLING FACE [None]
  - TINNITUS [None]
  - WEIGHT DECREASED [None]
